FAERS Safety Report 19610677 (Version 3)
Quarter: 2024Q1

REPORT INFORMATION
  Report Type: Spontaneous
  Country: US (occurrence: US)
  Receive Date: 20210726
  Receipt Date: 20240112
  Transmission Date: 20240409
  Serious: No
  Sender: FDA-Public Use
  Company Number: US-PFIZER INC-2021444897

PATIENT
  Age: 70 Year
  Sex: Male
  Weight: 58.957 kg

DRUGS (4)
  1. INLYTA [Suspect]
     Active Substance: AXITINIB
     Indication: Renal cancer
     Dosage: 100 MG
  2. INLYTA [Suspect]
     Active Substance: AXITINIB
     Dosage: 1 PO BID
     Route: 048
     Dates: start: 20210519
  3. ELIQUIS [Concomitant]
     Active Substance: APIXABAN
     Indication: Atrial fibrillation
  4. ELIQUIS [Concomitant]
     Active Substance: APIXABAN
     Indication: Pulmonary embolism

REACTIONS (9)
  - Dyspnoea [Unknown]
  - Asthenia [Unknown]
  - Dysstasia [Unknown]
  - Weight decreased [Unknown]
  - Fatigue [Unknown]
  - Chest discomfort [Unknown]
  - Nausea [Recovering/Resolving]
  - Decreased appetite [Unknown]
  - Product prescribing error [Unknown]
